FAERS Safety Report 14542461 (Version 1)
Quarter: 2018Q1

REPORT INFORMATION
  Report Type: Spontaneous
  Country: FI (occurrence: FI)
  Receive Date: 20180216
  Receipt Date: 20180216
  Transmission Date: 20180509
  Serious: Yes (Hospitalization, Other)
  Sender: FDA-Public Use
  Company Number: FI-OTSUKA-DJ201404244

PATIENT
  Age: 42 Year
  Sex: Female
  Weight: 68.03 kg

DRUGS (8)
  1. NICOTINE. [Concomitant]
     Active Substance: NICOTINE
     Indication: EX-TOBACCO USER
  2. ABILIFY [Suspect]
     Active Substance: ARIPIPRAZOLE
     Indication: PRODUCT USED FOR UNKNOWN INDICATION
     Dosage: 850 MILLIGRAM
     Route: 048
     Dates: start: 20140404, end: 20140404
  3. THYROXINE [Concomitant]
     Active Substance: LEVOTHYROXINE
     Indication: HYPOTHYROIDISM
     Dosage: UNK
     Route: 065
     Dates: start: 2008
  4. VARENICLINE TARTRATE [Concomitant]
     Active Substance: VARENICLINE TARTRATE
     Indication: SMOKING CESSATION THERAPY
     Dosage: UNK, BID
     Route: 048
  5. BUPROPION. [Concomitant]
     Active Substance: BUPROPION
     Indication: SMOKING CESSATION THERAPY
     Dosage: UNK, BID
     Route: 048
  6. NICOTINE. [Concomitant]
     Active Substance: NICOTINE
     Indication: SMOKING CESSATION THERAPY
     Dosage: UNK, QD
     Route: 062
  7. VARENICLINE TARTRATE [Concomitant]
     Active Substance: VARENICLINE TARTRATE
     Indication: EX-TOBACCO USER
  8. PLACEBO [Concomitant]
     Active Substance: UNSPECIFIED INGREDIENT
     Indication: EX-TOBACCO USER
     Dosage: UNK
     Route: 065
     Dates: start: 2008

REACTIONS (2)
  - Overdose [Unknown]
  - Borderline personality disorder [Not Recovered/Not Resolved]

NARRATIVE: CASE EVENT DATE: 20140409
